FAERS Safety Report 26179011 (Version 1)
Quarter: 2025Q4

REPORT INFORMATION
  Report Type: Spontaneous
  Country: EU (occurrence: EU)
  Receive Date: 20251219
  Receipt Date: 20251219
  Transmission Date: 20260117
  Serious: Yes (Other)
  Sender: RANBAXY
  Company Number: EU-CADRBFARM-2025338506

PATIENT
  Age: 26 Year
  Sex: Male
  Weight: 80 kg

DRUGS (1)
  1. TAMSULOSIN [Suspect]
     Active Substance: TAMSULOSIN
     Indication: Nephrolithiasis
     Dosage: 0.4 MILLIGRAM, UNK
     Route: 048
     Dates: start: 20250210, end: 20250220

REACTIONS (1)
  - Haemangioma [Recovered/Resolved with Sequelae]

NARRATIVE: CASE EVENT DATE: 20250410
